FAERS Safety Report 8273472-2 (Version None)
Quarter: 2012Q2

REPORT INFORMATION
  Report Type: 
  Country: None (occurrence: None)
  Receive Date: 20120411
  Receipt Date: 20120402
  Transmission Date: 20120825
  Serious: Yes (Hospitalization)
  Sender: FDA-Public Use
  Company Number: AU-ASTRAZENECA-2012SE22918

PATIENT
  Age: 27557 Day
  Sex: Male

DRUGS (8)
  1. ASPIRIN [Suspect]
     Indication: CORONARY ARTERY DISEASE
     Route: 048
  2. DITROPAN [Concomitant]
     Indication: BLADDER DYSFUNCTION
     Route: 048
  3. AZD6140 [Suspect]
     Indication: CORONARY ARTERY DISEASE
     Route: 048
     Dates: start: 20110915, end: 20120312
  4. NORVASC [Concomitant]
     Indication: HYPERTENSION
     Route: 048
  5. TADALAFIL [Concomitant]
     Indication: ERECTILE DYSFUNCTION
     Route: 048
  6. ROSUVASTATIN [Concomitant]
     Indication: HYPERCHOLESTEROLAEMIA
     Route: 048
  7. ATENOLOL [Concomitant]
     Indication: HYPERTENSION
     Route: 048
  8. PANADOL OSTEO [Concomitant]
     Indication: OSTEOARTHRITIS
     Route: 048

REACTIONS (1)
  - SUBDURAL HAEMATOMA [None]
